FAERS Safety Report 10384505 (Version 1)
Quarter: 2014Q1

REPORT INFORMATION
  Report Type: Spontaneous
  Country: US (occurrence: None)
  Receive Date: 20140306
  Receipt Date: 20140306
  Transmission Date: 20141002
  Serious: Yes (Other)
  Sender: FDA-Public Use
  Company Number: 163-21880-13080958

PATIENT
  Age: 81 Year
  Sex: Female

DRUGS (1)
  1. REVLIMD (LENALIDOMIDE) (5 MILLIGRAM, CAPSULES) [Suspect]
     Indication: MYELODYSPLASTIC SYNDROME
     Route: 048
     Dates: start: 20130708, end: 20130720

REACTIONS (3)
  - Rash macular [None]
  - Dry skin [None]
  - Skin disorder [None]
